FAERS Safety Report 9132621 (Version 2)
Quarter: 2013Q1

REPORT INFORMATION
  Report Type: Report from Study
  Country: US (occurrence: US)
  Receive Date: 20130301
  Receipt Date: 20130304
  Transmission Date: 20140127
  Serious: Yes (Hospitalization)
  Sender: FDA-Public Use
  Company Number: US-ABBOTT-13P-163-1053349-00

PATIENT
  Age: 60 Year
  Sex: Male

DRUGS (9)
  1. HUMIRA [Suspect]
     Indication: PSORIATIC ARTHROPATHY
     Dates: start: 20130130, end: 20130130
  2. HUMIRA [Suspect]
     Dates: start: 20130215, end: 20130215
  3. HUMIRA [Suspect]
     Dates: start: 20130215
  4. DIOVAN HCT [Concomitant]
     Indication: BLOOD PRESSURE
     Dosage: 160/12.5 MG ONCE DAILY
  5. OTC PRILOSEC [Concomitant]
     Indication: DYSPEPSIA
  6. POTASSIUM [Concomitant]
     Indication: PRODUCT USED FOR UNKNOWN INDICATION
     Dosage: 10 MEQ ONCE DAILY
  7. LIPITOR [Concomitant]
     Indication: BLOOD CHOLESTEROL
  8. ULORIC [Concomitant]
     Indication: GOUT
  9. ASA [Concomitant]
     Indication: CARDIAC DISORDER

REACTIONS (6)
  - Vision blurred [Not Recovered/Not Resolved]
  - Headache [Not Recovered/Not Resolved]
  - Dizziness [Not Recovered/Not Resolved]
  - Nausea [Not Recovered/Not Resolved]
  - Dizziness [Not Recovered/Not Resolved]
  - Muscular weakness [Not Recovered/Not Resolved]
